FAERS Safety Report 7471305-5 (Version None)
Quarter: 2011Q2

REPORT INFORMATION
  Report Type: 
  Country: None (occurrence: None)
  Receive Date: 20110510
  Receipt Date: 20110504
  Transmission Date: 20111010
  Serious: Yes (Hospitalization, Other)
  Sender: FDA-Public Use
  Company Number: US-ABBOTT-11P-163-0723691-00

PATIENT
  Sex: Male
  Weight: 77.18 kg

DRUGS (4)
  1. HUMIRA [Suspect]
     Indication: COLITIS ULCERATIVE
     Dosage: LOADING DOSE
     Dates: start: 20110415, end: 20110416
  2. SULFASALAZINE [Concomitant]
     Indication: COLITIS ULCERATIVE
  3. HUMIRA [Suspect]
     Dates: start: 20110429, end: 20110429
  4. IRON [Concomitant]
     Indication: ANAEMIA

REACTIONS (5)
  - ANAEMIA [None]
  - ABDOMINAL PAIN [None]
  - HAEMOGLOBIN DECREASED [None]
  - DIARRHOEA HAEMORRHAGIC [None]
  - INTRA-ABDOMINAL HAEMORRHAGE [None]
